FAERS Safety Report 7496894-6 (Version None)
Quarter: 2011Q2

REPORT INFORMATION
  Report Type: 
  Country: None (occurrence: None)
  Receive Date: 20110523
  Receipt Date: 20110521
  Transmission Date: 20111010
  Serious: No
  Sender: FDA-Public Use
  Company Number: US-TEVA-282811USA

PATIENT
  Sex: Female
  Weight: 90.346 kg

DRUGS (6)
  1. ZYRTEC [Concomitant]
     Indication: MULTIPLE ALLERGIES
     Dosage: 10 MILLIGRAM;
  2. ADVAIR DISKUS 100/50 [Concomitant]
     Indication: ASTHMA
  3. PLAN B ONE-STEP [Suspect]
     Indication: POST COITAL CONTRACEPTION
     Dosage: 1.5 MILLIGRAM;
     Route: 048
     Dates: start: 20110509, end: 20110509
  4. NASONEX [Concomitant]
     Indication: MULTIPLE ALLERGIES
  5. XOPENEX [Concomitant]
     Indication: ASTHMA
  6. SINGULAIR [Concomitant]
     Indication: MULTIPLE ALLERGIES
     Dosage: 10 MILLIGRAM;

REACTIONS (3)
  - FATIGUE [None]
  - DRUG INEFFECTIVE [None]
  - PREGNANCY AFTER POST COITAL CONTRACEPTION [None]
